FAERS Safety Report 4442708-8 (Version None)
Quarter: 2004Q3

REPORT INFORMATION
  Report Type: 
  Country: None (occurrence: None)
  Receive Date: 20040903
  Receipt Date: 20040618
  Transmission Date: 20050211
  Serious: Yes (Other)
  Sender: FDA-Public Use
  Company Number: 2004UW12730

PATIENT
  Age: 44 Year
  Sex: Male
  Weight: 79.3795 kg

DRUGS (1)
  1. CRESTOR [Suspect]
     Indication: BLOOD CHOLESTEROL INCREASED
     Dates: start: 20040601

REACTIONS (2)
  - ERYTHEMA [None]
  - RASH [None]
